FAERS Safety Report 21261756 (Version 1)
Quarter: 2022Q3

REPORT INFORMATION
  Report Type: Spontaneous
  Country: US (occurrence: US)
  Receive Date: 20220827
  Receipt Date: 20220827
  Transmission Date: 20221027
  Serious: Yes (Other)
  Sender: FDA-Public Use
  Company Number: US-ORGANON-O2208USA001908

PATIENT
  Age: 58 Year
  Sex: Male

DRUGS (3)
  1. PREGNYL [Suspect]
     Active Substance: CHORIOGONADOTROPIN ALFA
     Indication: Blood testosterone decreased
     Dosage: 200-300 UNITS TWICE A WEEK (10000 UNIT)
  2. PREGNYL [Suspect]
     Active Substance: CHORIOGONADOTROPIN ALFA
     Dosage: UNK
  3. WATER FOR INJECTION [Suspect]
     Active Substance: WATER
     Dosage: UNK

REACTIONS (6)
  - Mental impairment [Recovered/Resolved]
  - Loss of libido [Recovered/Resolved]
  - Hypersomnia [Recovered/Resolved]
  - Asthenia [Recovered/Resolved]
  - Off label use [Unknown]
  - Drug ineffective for unapproved indication [Unknown]

NARRATIVE: CASE EVENT DATE: 20220715
